FAERS Safety Report 15665716 (Version 1)
Quarter: 2018Q4

REPORT INFORMATION
  Report Type: Spontaneous
  Country: US (occurrence: US)
  Receive Date: 20181118
  Receipt Date: 20181118
  Transmission Date: 20190205
  Serious: Yes (Other)
  Sender: FDA-Public Use
  Company Number: None

PATIENT
  Age: 58 Year
  Sex: Female
  Weight: 56.25 kg

DRUGS (10)
  1. HEMP EUPHORIA GUMMIES [Suspect]
     Active Substance: HEMP
     Indication: INSOMNIA
     Dosage: ?          QUANTITY:1 GUMMY;?
     Route: 048
     Dates: start: 20180828, end: 20180828
  2. TEMAZAPAM [Concomitant]
     Active Substance: TEMAZEPAM
  3. ZQUILL [Concomitant]
  4. LIBERTY LOTION HEMP OIL BASED LOTION TOPICAL PAIN RELIEF 1.5 OZ [Suspect]
     Active Substance: CANNABIS SATIVA SEED OIL
     Indication: PAIN
     Dosage: ?          OTHER STRENGTH:50 MG;QUANTITY:1 1.5 OZ;?
     Route: 061
     Dates: start: 20180905, end: 20180905
  5. LIBERTY LOTION HEMP OIL BASED LOTION TOPICAL PAIN RELIEF 1.5 OZ [Suspect]
     Active Substance: CANNABIS SATIVA SEED OIL
     Indication: MENOPAUSE
     Dosage: ?          OTHER STRENGTH:50 MG;QUANTITY:1 1.5 OZ;?
     Route: 061
     Dates: start: 20180905, end: 20180905
  6. HEMP EUPHORIA GUMMIES [Suspect]
     Active Substance: HEMP
     Indication: PAIN
     Dosage: ?          QUANTITY:1 GUMMY;?
     Route: 048
     Dates: start: 20180828, end: 20180828
  7. HEMP EUPHORIA GUMMIES [Suspect]
     Active Substance: HEMP
     Indication: MENOPAUSE
     Dosage: ?          QUANTITY:1 GUMMY;?
     Route: 048
     Dates: start: 20180828, end: 20180828
  8. LIBERTY LOTION HEMP OIL BASED LOTION TOPICAL PAIN RELIEF 1.5 OZ [Suspect]
     Active Substance: CANNABIS SATIVA SEED OIL
     Indication: INSOMNIA
     Dosage: ?          OTHER STRENGTH:50 MG;QUANTITY:1 1.5 OZ;?
     Route: 061
     Dates: start: 20180905, end: 20180905
  9. VALIUM [Concomitant]
     Active Substance: DIAZEPAM
  10. ADVIL PM [Concomitant]
     Active Substance: DIPHENHYDRAMINE CITRATE\IBUPROFEN

REACTIONS (7)
  - Nausea [None]
  - Urticaria [None]
  - Palpitations [None]
  - Throat tightness [None]
  - Hypersensitivity [None]
  - Panic reaction [None]
  - Malaise [None]

NARRATIVE: CASE EVENT DATE: 20181113
